FAERS Safety Report 12284446 (Version 1)
Quarter: 2016Q2

REPORT INFORMATION
  Report Type: Other
  Country: CA (occurrence: CA)
  Receive Date: 20160420
  Receipt Date: 20160420
  Transmission Date: 20160815
  Serious: Yes (Hospitalization)
  Sender: FDA-Public Use
  Company Number: CA-APOTEX-2016AP007704

PATIENT
  Age: 57 Year
  Sex: Female
  Weight: 50 kg

DRUGS (1)
  1. APO-AZITHROMYCIN TABLETS 250 MG [Suspect]
     Active Substance: AZITHROMYCIN ANHYDROUS
     Indication: BRONCHITIS
     Dosage: 250 MG, 1 EVERY 5 DAYS
     Route: 048

REACTIONS (3)
  - Cardiac failure [Unknown]
  - Myocarditis [Unknown]
  - Pulse absent [Unknown]
